FAERS Safety Report 13705770 (Version 2)
Quarter: 2017Q3

REPORT INFORMATION
  Report Type: Spontaneous
  Country: JP (occurrence: JP)
  Receive Date: 20170630
  Receipt Date: 20170706
  Transmission Date: 20171127
  Serious: Yes (Hospitalization)
  Sender: FDA-Public Use
  Company Number: JP-TEVA-781234ROM

PATIENT
  Age: 31 Year
  Sex: Female

DRUGS (3)
  1. AMOXICILLIN. [Suspect]
     Active Substance: AMOXICILLIN
     Indication: SYPHILIS
     Dosage: 1.5 G/DAY
     Route: 065
     Dates: start: 201506
  2. PROBENECID. [Suspect]
     Active Substance: PROBENECID
     Indication: SYPHILIS
     Dosage: 750 MG/DAY
     Route: 065
  3. AMOXICILLIN. [Suspect]
     Active Substance: AMOXICILLIN
     Indication: SYPHILIS
     Dosage: 3 G/DAY
     Route: 065

REACTIONS (3)
  - Jarisch-Herxheimer reaction [Unknown]
  - Hyperemesis gravidarum [Unknown]
  - Maternal exposure during pregnancy [Unknown]
